FAERS Safety Report 4307250-3 (Version None)
Quarter: 2004Q1

REPORT INFORMATION
  Report Type: 
  Country: None (occurrence: None)
  Receive Date: 20040226
  Receipt Date: 20040212
  Transmission Date: 20041129
  Serious: Yes (Death, Other)
  Sender: FDA-Public Use
  Company Number: USA-2004-0013158

PATIENT
  Age: 59 Year
  Sex: Male
  Weight: 99.8 kg

DRUGS (2)
  1. OXYCONTIN [Suspect]
  2. PROZAC [Suspect]

REACTIONS (6)
  - DRUG ABUSER [None]
  - EPISTAXIS [None]
  - HYPERHIDROSIS [None]
  - MOUTH HAEMORRHAGE [None]
  - RESTLESSNESS [None]
  - TOXICOLOGIC TEST ABNORMAL [None]
